FAERS Safety Report 18716667 (Version 1)
Quarter: 2021Q1

REPORT INFORMATION
  Report Type: Spontaneous
  Country: US (occurrence: US)
  Receive Date: 20210107
  Receipt Date: 20210107
  Transmission Date: 20210419
  Serious: No
  Sender: FDA-Public Use
  Company Number: None

PATIENT
  Age: 36 Year
  Sex: Male
  Weight: 85 kg

DRUGS (1)
  1. ENALAPRILAT (ENALAPRILAT 1.25MG/ML INJ) [Suspect]
     Active Substance: ENALAPRILAT
     Indication: HYPERTENSION
     Route: 042
     Dates: start: 20201205, end: 20201205

REACTIONS (5)
  - Stridor [None]
  - Angioedema [None]
  - Respiratory distress [None]
  - Swollen tongue [None]
  - Blood pressure increased [None]

NARRATIVE: CASE EVENT DATE: 20201205
